FAERS Safety Report 5644078-6 (Version None)
Quarter: 2008Q1

REPORT INFORMATION
  Report Type: 
  Country: None (occurrence: None)
  Receive Date: 20080226
  Receipt Date: 20080212
  Transmission Date: 20080703
  Serious: Yes (Hospitalization)
  Sender: FDA-Public Use
  Company Number: B0509199A

PATIENT
  Age: 61 Year
  Sex: Female

DRUGS (2)
  1. AUGMENTIN [Suspect]
     Indication: LOCALISED INFECTION
     Dosage: ORAL
     Route: 048
     Dates: start: 20071223, end: 20071224
  2. CORTICOSTEROID [Concomitant]

REACTIONS (5)
  - DRUG ERUPTION [None]
  - ERYTHEMA [None]
  - PRURITUS [None]
  - RASH MACULAR [None]
  - TOXIC SKIN ERUPTION [None]
